FAERS Safety Report 18364678 (Version 1)
Quarter: 2020Q4

REPORT INFORMATION
  Report Type: Spontaneous
  Country: JP (occurrence: JP)
  Receive Date: 20201009
  Receipt Date: 20201009
  Transmission Date: 20210114
  Serious: Yes (Death)
  Sender: FDA-Public Use
  Company Number: NVSJ2020JP009944

PATIENT

DRUGS (1)
  1. ENERZAIR (MOMETASONE FUROATE\INDACATEROL ACETATE\GLYCOPYRRONIUM BROMIDE) [Suspect]
     Active Substance: GLYCOPYRROLATE\INDACATEROL\MOMETASONE FUROATE
     Indication: ASTHMA
     Dosage: 1DF: INDACATEROL150UG, GLYCOPYRRONIUM50UG AND MOMETASONE FUROATE UNKNOWN
     Route: 055

REACTIONS (1)
  - Death [Fatal]
